FAERS Safety Report 5180324-3 (Version None)
Quarter: 2006Q4

REPORT INFORMATION
  Report Type: 
  Country: None (occurrence: None)
  Receive Date: 20061219
  Receipt Date: 20060910
  Transmission Date: 20070319
  Serious: No
  Sender: FDA-Public Use
  Company Number: US-AMGEN-KDL193141

PATIENT
  Sex: Female

DRUGS (2)
  1. ENBREL [Suspect]
     Indication: RHEUMATOID ARTHRITIS
     Route: 058
     Dates: start: 20060401
  2. PLAQUENIL [Concomitant]
     Dates: start: 20000101

REACTIONS (6)
  - ARTHRALGIA [None]
  - ARTHROPOD BITE [None]
  - HYPERSENSITIVITY [None]
  - MUSCULOSKELETAL PAIN [None]
  - NEOPLASM [None]
  - PAIN IN EXTREMITY [None]
